FAERS Safety Report 22589372 (Version 1)
Quarter: 2023Q2

REPORT INFORMATION
  Report Type: Spontaneous
  Country: US (occurrence: US)
  Receive Date: 20230612
  Receipt Date: 20230612
  Transmission Date: 20230722
  Serious: Yes (Life-Threatening, Hospitalization, Other)
  Sender: FDA-Public Use
  Company Number: US-JUBILANT CADISTA PHARMACEUTICALS-2023JUB00226

PATIENT
  Age: 38 Year
  Sex: Male

DRUGS (4)
  1. MYCOPHENOLATE SODIUM [Suspect]
     Active Substance: MYCOPHENOLATE SODIUM
     Indication: Immunosuppressant drug therapy
     Dosage: UNK
     Dates: start: 201911, end: 20200906
  2. EVEROLIMUS [Suspect]
     Active Substance: EVEROLIMUS
     Indication: Immunosuppressant drug therapy
     Dosage: UNK
     Dates: start: 20201013, end: 20201101
  3. TACROLIMUS [Suspect]
     Active Substance: TACROLIMUS
     Indication: Immunosuppressant drug therapy
     Dosage: UNK
     Dates: start: 201911
  4. PREDNISONE [Concomitant]
     Active Substance: PREDNISONE
     Indication: Immunosuppressant drug therapy
     Dosage: UNK
     Dates: start: 201911

REACTIONS (10)
  - Peritonitis [Recovered/Resolved]
  - Gastric ulcer perforation [Recovered/Resolved]
  - Weight decreased [Unknown]
  - Oesophageal ulcer [Recovered/Resolved]
  - Gastrointestinal ulcer perforation [Recovered/Resolved]
  - Ileal ulcer [Recovered/Resolved]
  - Gastric ulcer haemorrhage, obstructive [Recovered/Resolved]
  - Haemoglobin decreased [Unknown]
  - Large intestine perforation [Recovered/Resolved]
  - Drug interaction [Recovered/Resolved]

NARRATIVE: CASE EVENT DATE: 20200901
